FAERS Safety Report 12469566 (Version 1)
Quarter: 2016Q2

REPORT INFORMATION
  Report Type: Spontaneous
  Country: US (occurrence: US)
  Receive Date: 20160615
  Receipt Date: 20160615
  Transmission Date: 20160815
  Serious: Yes (Death)
  Sender: FDA-Public Use
  Company Number: US-RELYPSA-RLY2016000933

PATIENT

DRUGS (31)
  1. DOXAZOSIN MESYLATE. [Concomitant]
     Active Substance: DOXAZOSIN MESYLATE
  2. FINASTERIDE. [Concomitant]
     Active Substance: FINASTERIDE
  3. PAROXETINE HCL [Concomitant]
     Active Substance: PAROXETINE HYDROCHLORIDE
  4. COQ 10 [Concomitant]
     Active Substance: UBIDECARENONE
  5. FLOMAX [Concomitant]
     Active Substance: TAMSULOSIN HYDROCHLORIDE
  6. MELATONIN [Concomitant]
     Active Substance: MELATONIN
  7. MUCINEX DM [Concomitant]
     Active Substance: DEXTROMETHORPHAN HYDROBROMIDE\GUAIFENESIN
  8. PREVACID [Concomitant]
     Active Substance: LANSOPRAZOLE
  9. TYLENOL ARTHRITIS PAIN [Concomitant]
     Active Substance: ACETAMINOPHEN
  10. ZINC [Concomitant]
     Active Substance: ZINC\ZINC CHLORIDE
  11. VELTASSA [Suspect]
     Active Substance: PATIROMER
     Indication: HYPERKALAEMIA
     Dosage: 8.4 G, QD
     Route: 048
  12. SPIRIVA [Concomitant]
     Active Substance: TIOTROPIUM BROMIDE MONOHYDRATE
  13. XARELTO [Concomitant]
     Active Substance: RIVAROXABAN
  14. ALDACTONE [Concomitant]
     Active Substance: SPIRONOLACTONE
  15. COREG [Concomitant]
     Active Substance: CARVEDILOL
  16. FOLIC ACID. [Concomitant]
     Active Substance: FOLIC ACID
  17. SODIUM BICARBONATE. [Concomitant]
     Active Substance: SODIUM BICARBONATE
  18. VITAMIN C [Concomitant]
     Active Substance: ASCORBIC ACID
  19. CYANOCOBALAMIN. [Concomitant]
     Active Substance: CYANOCOBALAMIN
  20. DIGOXIN. [Concomitant]
     Active Substance: DIGOXIN
  21. FUROSEMIDE. [Concomitant]
     Active Substance: FUROSEMIDE
  22. VITAMIN D                          /00107901/ [Concomitant]
     Active Substance: ERGOCALCIFEROL
  23. INDERAL [Concomitant]
     Active Substance: PROPRANOLOL HYDROCHLORIDE
  24. LUCENTIS [Concomitant]
     Active Substance: RANIBIZUMAB
  25. CALCIUM [Concomitant]
     Active Substance: CALCIUM
     Dosage: 500, UNK
  26. IRON [Concomitant]
     Active Substance: IRON
  27. MIRALAX [Concomitant]
     Active Substance: POLYETHYLENE GLYCOL 3350
  28. NITROSTAT [Concomitant]
     Active Substance: NITROGLYCERIN
  29. PROCRIT [Concomitant]
     Active Substance: ERYTHROPOIETIN
  30. ULORIC [Concomitant]
     Active Substance: FEBUXOSTAT
  31. ZYRTEC [Concomitant]
     Active Substance: CETIRIZINE HYDROCHLORIDE

REACTIONS (1)
  - Death [Fatal]

NARRATIVE: CASE EVENT DATE: 20160606
